FAERS Safety Report 13491050 (Version 2)
Quarter: 2018Q1

REPORT INFORMATION
  Report Type: Spontaneous
  Country: HR (occurrence: HR)
  Receive Date: 20170427
  Receipt Date: 20180102
  Transmission Date: 20180508
  Serious: Yes (Other)
  Sender: FDA-Public Use
  Company Number: HR-ROCHE-1924634

PATIENT
  Age: 62 Year
  Sex: Male

DRUGS (3)
  1. COTELLIC [Suspect]
     Active Substance: COBIMETINIB
     Indication: MALIGNANT MELANOMA
     Dosage: 3 WEEKS ON AND 1 WEEK OFF
     Route: 048
     Dates: start: 20170323, end: 20170404
  2. ZELBORAF [Concomitant]
     Active Substance: VEMURAFENIB
     Indication: MALIGNANT MELANOMA
     Route: 048
     Dates: start: 20170516
  3. COTELLIC [Suspect]
     Active Substance: COBIMETINIB
     Dosage: REINTRODUCED?2 TABLETS OF 20 MG PER DAY, 3 WEEKS ON AND 1 WEEK OFF REDUCED DOSE
     Route: 048
     Dates: start: 20170420

REACTIONS (4)
  - Haematuria [Recovered/Resolved]
  - Rectal haemorrhage [Recovered/Resolved]
  - Haematochezia [Recovered/Resolved]
  - Blood urine present [Unknown]

NARRATIVE: CASE EVENT DATE: 20170404
